FAERS Safety Report 18458766 (Version 1)
Quarter: 2020Q4

REPORT INFORMATION
  Report Type: Spontaneous
  Country: US (occurrence: US)
  Receive Date: 20201103
  Receipt Date: 20201103
  Transmission Date: 20210114
  Serious: Yes (Other)
  Sender: FDA-Public Use
  Company Number: US-MEDEXUS PHARMA, INC.-2020MED00322

PATIENT
  Sex: Female
  Weight: 99.79 kg

DRUGS (12)
  1. RASUVO [Suspect]
     Active Substance: METHOTREXATE SODIUM
     Indication: CONNECTIVE TISSUE DISORDER
     Dosage: 15 MG, 1X/WEEK ON SATURDAYS; INTO UPPER THIGH
     Route: 058
     Dates: start: 202005
  2. PRAVASTATIN. [Concomitant]
     Active Substance: PRAVASTATIN
  3. TRAMADOL. [Concomitant]
     Active Substance: TRAMADOL
     Dosage: DAILY
  4. VITAMIN D [Concomitant]
     Active Substance: VITAMIN D NOS
  5. RASUVO [Suspect]
     Active Substance: METHOTREXATE SODIUM
     Indication: PSORIATIC ARTHROPATHY
  6. ALLOPURINOL. [Concomitant]
     Active Substance: ALLOPURINOL
  7. UNSPECIFIED BLOOD PRESSURE MEDICATION #2 [Concomitant]
  8. UNSPECIFIED THYROID MEDICATION [Concomitant]
     Active Substance: UNSPECIFIED INGREDIENT
  9. LUTEIN [Concomitant]
     Active Substance: LUTEIN
  10. XELJANZ [Concomitant]
     Active Substance: TOFACITINIB CITRATE
  11. UNSPECIFIED BLOOD PRESSURE MEDICATION #1 [Concomitant]
  12. IRON [Concomitant]
     Active Substance: IRON

REACTIONS (5)
  - Connective tissue disorder [Not Recovered/Not Resolved]
  - Therapeutic product effect incomplete [Not Recovered/Not Resolved]
  - Psoriatic arthropathy [Not Recovered/Not Resolved]
  - Musculoskeletal disorder [Not Recovered/Not Resolved]
  - Dental caries [Recovered/Resolved]

NARRATIVE: CASE EVENT DATE: 2020
